FAERS Safety Report 17854526 (Version 1)
Quarter: 2020Q2

REPORT INFORMATION
  Report Type: Spontaneous
  Country: US (occurrence: US)
  Receive Date: 20200603
  Receipt Date: 20200603
  Transmission Date: 20200714
  Serious: No
  Sender: FDA-Public Use
  Company Number: US-SA-2020SA141643

PATIENT

DRUGS (1)
  1. DUPIXENT [Suspect]
     Active Substance: DUPILUMAB
     Indication: ECZEMA
     Dosage: UNK UNK, QOW

REACTIONS (5)
  - Eye disorder [Unknown]
  - Lip dry [Unknown]
  - Dry eye [Unknown]
  - Eczema [Unknown]
  - Therapeutic response decreased [Unknown]
